FAERS Safety Report 5228656-4 (Version None)
Quarter: 2007Q1

REPORT INFORMATION
  Report Type: 
  Country: None (occurrence: None)
  Receive Date: 20070205
  Receipt Date: 20070201
  Transmission Date: 20070707
  Serious: Yes (Other)
  Sender: FDA-Public Use
  Company Number: US-GLAXOSMITHKLINE-A0637998A

PATIENT
  Age: 83 Year
  Sex: Male

DRUGS (13)
  1. COREG [Suspect]
     Dosage: 6.25MG TWICE PER DAY
     Route: 048
  2. TRICOR [Concomitant]
  3. DIOVAN [Concomitant]
  4. PROZAC [Concomitant]
  5. NEXIUM [Concomitant]
  6. FLOMAX [Concomitant]
  7. XALATAN [Concomitant]
  8. TIMOPTIC [Concomitant]
  9. MULTI-VITAMIN [Concomitant]
  10. VITAMIN E [Concomitant]
  11. ASPIRIN [Concomitant]
  12. ASCORBIC ACID [Concomitant]
  13. PROCRIT [Concomitant]

REACTIONS (2)
  - ANAEMIA [None]
  - BLOOD GLUCOSE INCREASED [None]
